FAERS Safety Report 4600058-0 (Version None)
Quarter: 2005Q1

REPORT INFORMATION
  Report Type: 
  Country: None (occurrence: None)
  Receive Date: 20050303
  Receipt Date: 20050222
  Transmission Date: 20050727
  Serious: Yes (Death, Life-Threatening, Hospitalization, Other)
  Sender: FDA-Public Use
  Company Number: 2005-02-1524

PATIENT
  Age: 51 Year
  Sex: Male

DRUGS (2)
  1. PEG-INTERFERON ALFA-2B INJECTABLE POWDER [Suspect]
     Indication: HEPATITIS C
     Dosage: 100 MCG QW SUBCUTANEOUS
     Route: 058
  2. REBETOL [Suspect]
     Indication: HEPATITIS C
     Dosage: 1200 MG QD ORAL
     Route: 048

REACTIONS (12)
  - BLOOD CREATININE DECREASED [None]
  - BRAIN HERNIATION [None]
  - BRAIN OEDEMA [None]
  - C-REACTIVE PROTEIN INCREASED [None]
  - DYSPNOEA [None]
  - HEPATIC FIBROSIS [None]
  - HYPOXIA [None]
  - PNEUMONITIS [None]
  - PYREXIA [None]
  - RESPIRATORY DISORDER [None]
  - RESPIRATORY FAILURE [None]
  - WHITE BLOOD CELL COUNT INCREASED [None]
